FAERS Safety Report 25869873 (Version 1)
Quarter: 2025Q4

REPORT INFORMATION
  Report Type: Spontaneous
  Country: US (occurrence: US)
  Receive Date: 20251001
  Receipt Date: 20251001
  Transmission Date: 20260119
  Serious: No
  Sender: RECKITT BENCKISER
  Company Number: US-INDIVIOR US-INDV-157052-2024

PATIENT
  Sex: Male

DRUGS (1)
  1. SUBOXONE [Suspect]
     Active Substance: BUPRENORPHINE HYDROCHLORIDE\NALOXONE HYDROCHLORIDE
     Indication: Drug dependence
     Dosage: 8 MILLIGRAM, UNKNOWN
     Route: 065
     Dates: start: 2018

REACTIONS (6)
  - Periodontitis [Unknown]
  - Tooth deposit [Unknown]
  - Dental caries [Unknown]
  - Tooth erosion [Unknown]
  - Tooth demineralisation [Unknown]
  - Dental restoration failure [Recovered/Resolved]

NARRATIVE: CASE EVENT DATE: 20210101
